FAERS Safety Report 25447901 (Version 1)
Quarter: 2025Q2

REPORT INFORMATION
  Report Type: Spontaneous
  Country: CA (occurrence: CA)
  Receive Date: 20250617
  Receipt Date: 20250617
  Transmission Date: 20250717
  Serious: Yes (Hospitalization)
  Sender: CSL BEHRING
  Company Number: CA-BEH-2025209375

PATIENT
  Age: 86 Year
  Sex: Female

DRUGS (1)
  1. ANTIHEMOPHILIC FACTOR, HUMAN RECOMBINANT [Suspect]
     Active Substance: ANTIHEMOPHILIC FACTOR, HUMAN RECOMBINANT
     Indication: Haemophilia
     Route: 042

REACTIONS (3)
  - Confusional state [Recovered/Resolved]
  - Respiratory tract infection [Recovered/Resolved]
  - Tremor [Recovered/Resolved]
